FAERS Safety Report 21659971 (Version 1)
Quarter: 2022Q4

REPORT INFORMATION
  Report Type: Spontaneous
  Country: BR (occurrence: BR)
  Receive Date: 20221130
  Receipt Date: 20221130
  Transmission Date: 20230112
  Serious: Yes (Other)
  Sender: FDA-Public Use
  Company Number: BR-BIOGEN-2022BI01171429

PATIENT
  Age: 13 Year
  Sex: Female

DRUGS (1)
  1. SPINRAZA [Suspect]
     Active Substance: NUSINERSEN
     Indication: Spinal muscular atrophy
     Route: 050

REACTIONS (5)
  - Spinal osteoarthritis [Unknown]
  - Fall [Recovered/Resolved]
  - Ankle fracture [Unknown]
  - Gait disturbance [Unknown]
  - Scoliosis [Unknown]
